FAERS Safety Report 22977590 (Version 3)
Quarter: 2024Q1

REPORT INFORMATION
  Report Type: Spontaneous
  Country: US (occurrence: US)
  Receive Date: 20230925
  Receipt Date: 20240103
  Transmission Date: 20240410
  Serious: Yes (Other)
  Sender: FDA-Public Use
  Company Number: US-SA-SAC20230922000318

PATIENT
  Age: 62 Year
  Sex: Female

DRUGS (2)
  1. DUPIXENT [Suspect]
     Active Substance: DUPILUMAB
     Indication: Dermatitis atopic
     Dosage: 600 MG, 1X
     Route: 058
     Dates: start: 20230801, end: 20230801
  2. DUPIXENT [Suspect]
     Active Substance: DUPILUMAB
     Dosage: 300 MG, QOW
     Route: 058
     Dates: start: 20230815, end: 2023

REACTIONS (12)
  - Diverticulitis [Unknown]
  - Abdominal pain upper [Unknown]
  - Depression [Unknown]
  - Initial insomnia [Unknown]
  - Pain [Unknown]
  - Affective disorder [Unknown]
  - Emotional disorder [Unknown]
  - Exposure to toxic agent [Unknown]
  - Eczema [Unknown]
  - Pruritus [Unknown]
  - Impaired quality of life [Unknown]
  - Drug ineffective [Unknown]

NARRATIVE: CASE EVENT DATE: 20230101
